FAERS Safety Report 7150529-0 (Version None)
Quarter: 2010Q4

REPORT INFORMATION
  Report Type: 
  Country: None (occurrence: None)
  Receive Date: 20101210
  Receipt Date: 20101129
  Transmission Date: 20110411
  Serious: Yes (Other)
  Sender: FDA-Public Use
  Company Number: US-ELI_LILLY_AND_COMPANY-US201009004989

PATIENT
  Age: 55 Year
  Sex: Male

DRUGS (7)
  1. CIALIS [Suspect]
     Indication: ERECTILE DYSFUNCTION
     Dosage: 10 MG, UNK
     Dates: start: 20070701
  2. LISINOPRIL [Concomitant]
  3. CLONIDINE [Concomitant]
  4. AMLODIPINE [Concomitant]
  5. FLOMAX [Concomitant]
  6. HYDROCHLOROTHIAZIDE [Concomitant]
  7. LOPRESSOR [Concomitant]

REACTIONS (3)
  - DRUG EFFECT DECREASED [None]
  - HYPERTENSION [None]
  - PROSTATE CANCER [None]
